FAERS Safety Report 7512526-2 (Version None)
Quarter: 2011Q2

REPORT INFORMATION
  Report Type: 
  Country: None (occurrence: None)
  Receive Date: 20110531
  Receipt Date: 20110524
  Transmission Date: 20111010
  Serious: Yes (Other)
  Sender: FDA-Public Use
  Company Number: AU-ROCHE-778990

PATIENT

DRUGS (1)
  1. HERCEPTIN [Suspect]
     Indication: METASTASIS
     Dosage: THERAPY WAS STOPPED AND SWITCHED.
     Route: 065

REACTIONS (1)
  - NEOPLASM MALIGNANT [None]
